FAERS Safety Report 15343896 (Version 6)
Quarter: 2018Q3

REPORT INFORMATION
  Report Type: Spontaneous
  Country: DE (occurrence: DE)
  Receive Date: 20180903
  Receipt Date: 20180913
  Transmission Date: 20181010
  Serious: Yes (Congenital Anomaly, Other)
  Sender: FDA-Public Use
  Company Number: PHHY2018DE085201

PATIENT
  Sex: Male
  Weight: .39 kg

DRUGS (6)
  1. LEVOTHYROXINE. [Suspect]
     Active Substance: LEVOTHYROXINE
     Indication: PRODUCT USED FOR UNKNOWN INDICATION
     Dosage: MATERNAL DOSE: FROM  0 TO 27 GESTATIONAL WEEK
     Route: 064
  2. DICLOFENAC [Suspect]
     Active Substance: DICLOFENAC
     Indication: PAIN
     Dosage: MATERNAL DOSE: FROM 0 TO 27 GESTATIONAL WEEK + 1 FOR RE NATA
     Route: 064
  3. PARACETAMOL [Suspect]
     Active Substance: ACETAMINOPHEN
     Indication: PRODUCT USED FOR UNKNOWN INDICATION
     Dosage: MATERNAL DOSE: FROM 0 TO 4 GESTATIONAL WEEK
     Route: 064
  4. OMEPRAZOLE. [Suspect]
     Active Substance: OMEPRAZOLE
     Indication: PRODUCT USED FOR UNKNOWN INDICATION
     Dosage: MATERNAL DOSE:FROM 0 TO 4 GESTATIONAL WEEK
     Route: 064
  5. LYNESTRENOL [Suspect]
     Active Substance: LYNESTRENOL
     Indication: PRODUCT USED FOR UNKNOWN INDICATION
     Dosage: MATERNAL DOSE: FROM 0 TO 4 GESTATIONAL WEEK
     Route: 064
  6. IBUPROFEN. [Suspect]
     Active Substance: IBUPROFEN
     Indication: PRODUCT USED FOR UNKNOWN INDICATION
     Dosage: MATERNAL DOSE:FROM 0 TO 27 GESTATIONAL WEEK
     Route: 064

REACTIONS (7)
  - Splenomegaly [Unknown]
  - Atrial septal defect [Unknown]
  - Pupils unequal [Unknown]
  - Pyloric stenosis [Unknown]
  - Cerebral atrophy congenital [Unknown]
  - Macrocephaly [Unknown]
  - Foetal exposure during pregnancy [Unknown]
